FAERS Safety Report 12975413 (Version 1)
Quarter: 2016Q4

REPORT INFORMATION
  Report Type: Spontaneous
  Country: GB (occurrence: GB)
  Receive Date: 20161125
  Receipt Date: 20161125
  Transmission Date: 20170207
  Serious: Yes (Life-Threatening)
  Sender: FDA-Public Use
  Company Number: GB-009507513-1611GBR012392

PATIENT
  Age: 64 Year
  Sex: Male

DRUGS (9)
  1. PROPOFOL. [Suspect]
     Active Substance: PROPOFOL
     Indication: KNEE ARTHROPLASTY
     Dosage: 250 MG, QD
     Dates: start: 20161025, end: 20161025
  2. PARECOXIB [Suspect]
     Active Substance: PARECOXIB
     Indication: KNEE ARTHROPLASTY
     Dosage: 40 MG, UNK
     Route: 042
     Dates: start: 20161025, end: 20161025
  3. TEICOPLANIN [Suspect]
     Active Substance: TEICOPLANIN
     Indication: KNEE ARTHROPLASTY
     Dosage: 800 MG, UNK
     Route: 042
     Dates: start: 20161025, end: 20161025
  4. GENTAMICIN SULFATE. [Suspect]
     Active Substance: GENTAMICIN SULFATE
     Indication: KNEE ARTHROPLASTY
     Dosage: 160 MG, UNK
     Route: 042
     Dates: start: 20161025, end: 20161025
  5. LEVOBUPIVACAINE [Suspect]
     Active Substance: LEVOBUPIVACAINE
     Indication: KNEE ARTHROPLASTY
     Dosage: 40 ML, UNK
     Route: 058
     Dates: start: 20161025, end: 20161025
  6. FENTANYL. [Suspect]
     Active Substance: FENTANYL
     Indication: KNEE ARTHROPLASTY
     Dosage: 100 MICROGRAM, UNK
     Route: 042
     Dates: start: 20161025, end: 20161025
  7. SEVOFLURANE. [Suspect]
     Active Substance: SEVOFLURANE
     Indication: KNEE ARTHROPLASTY
     Dosage: UNK
     Route: 055
     Dates: start: 20161025, end: 20161025
  8. DEXAMETHASONE. [Suspect]
     Active Substance: DEXAMETHASONE
     Indication: KNEE ARTHROPLASTY
     Dosage: 6.6 MG, UNK
     Route: 042
     Dates: start: 20161025, end: 20161025
  9. TRANEXAMIC ACID. [Suspect]
     Active Substance: TRANEXAMIC ACID
     Dosage: 1 GM, UNK
     Route: 042
     Dates: start: 20161025, end: 20161025

REACTIONS (2)
  - Hypotension [Recovered/Resolved]
  - Anaphylactic reaction [Recovered/Resolved]

NARRATIVE: CASE EVENT DATE: 20161025
